FAERS Safety Report 5627467-5 (Version None)
Quarter: 2008Q1

REPORT INFORMATION
  Report Type: 
  Country: None (occurrence: None)
  Receive Date: 20080215
  Receipt Date: 20080204
  Transmission Date: 20080703
  Serious: Yes (Death, Life-Threatening)
  Sender: FDA-Public Use
  Company Number: JP-AMGEN-US252501

PATIENT
  Sex: Female
  Weight: 68 kg

DRUGS (16)
  1. ENBREL [Suspect]
     Indication: RHEUMATOID ARTHRITIS
     Route: 058
     Dates: start: 20060905, end: 20070226
  2. ENBREL [Suspect]
     Dates: start: 20070227, end: 20070306
  3. MEDROL [Concomitant]
     Indication: RHEUMATOID ARTHRITIS
     Route: 048
     Dates: start: 20060905
  4. NEOISCOTIN [Concomitant]
     Dosage: UNSPECIFIED
     Route: 048
  5. AMLODIPINE BESYLATE [Concomitant]
     Route: 048
     Dates: start: 20060905
  6. LANSOPRAZOLE [Concomitant]
     Route: 048
     Dates: start: 20060905
  7. VOLTAREN [Concomitant]
     Indication: RHEUMATOID ARTHRITIS
     Dosage: UNSPECIFIED
     Route: 048
  8. PYRIDOXAL PHOSPHATE [Concomitant]
     Dosage: UNSPECIFIED
     Route: 048
  9. ZOLPIDEM TARTRATE [Concomitant]
     Route: 048
     Dates: start: 20060905
  10. HOKUNALIN [Concomitant]
     Dosage: UNSPECIFIED DOSE TAP
     Route: 065
  11. CODEINE PHOSPHATE [Concomitant]
     Dosage: UNSPECIFIED
     Route: 048
  12. ALENDRONATE SODIUM [Concomitant]
     Route: 065
     Dates: start: 20060905
  13. CELECOXIB [Concomitant]
     Route: 048
     Dates: start: 20070626
  14. EPADEL [Concomitant]
     Route: 048
     Dates: start: 20061205
  15. LIPITOR [Concomitant]
     Route: 048
     Dates: start: 20070109
  16. SULFASALAZINE [Concomitant]
     Indication: RHEUMATOID ARTHRITIS
     Route: 048
     Dates: start: 20060627, end: 20061128

REACTIONS (3)
  - CONDITION AGGRAVATED [None]
  - INTERSTITIAL LUNG DISEASE [None]
  - PANCREATITIS ACUTE [None]
